FAERS Safety Report 4356057-X (Version None)
Quarter: 2004Q2

REPORT INFORMATION
  Report Type: 
  Country: None (occurrence: None)
  Receive Date: 20040511
  Receipt Date: 20020904
  Transmission Date: 20050107
  Serious: Yes (Hospitalization, Disabling, Other)
  Sender: FDA-Public Use
  Company Number: US-MERCK-0209USA00437

PATIENT
  Age: 85 Year
  Sex: Female
  Weight: 48 kg

DRUGS (11)
  1. HYDRODIURIL [Concomitant]
     Route: 048
  2. HYDROXYCHLOROQUINE SULFATE [Concomitant]
     Route: 065
  3. CLARITIN [Concomitant]
     Route: 065
  4. POTASSIUM (UNSPECIFIED) [Concomitant]
     Route: 065
  5. VIOXX [Suspect]
     Indication: RHEUMATOID ARTHRITIS
     Route: 048
     Dates: start: 20000701, end: 20000801
  6. SALSALATE [Concomitant]
     Route: 065
  7. SULFASALAZINE [Concomitant]
     Route: 065
  8. TYLENOL (CAPLET) [Concomitant]
     Route: 065
     Dates: start: 19930101
  9. ATENOLOL [Concomitant]
     Route: 065
  10. CAPTOPRIL [Concomitant]
     Route: 065
  11. PREMPRO [Concomitant]
     Route: 065

REACTIONS (14)
  - CEREBROVASCULAR ACCIDENT [None]
  - CONVULSION [None]
  - DRUG LEVEL FLUCTUATING [None]
  - GASTROINTESTINAL ULCER HAEMORRHAGE [None]
  - GRAND MAL CONVULSION [None]
  - INJURY [None]
  - MENTAL IMPAIRMENT [None]
  - MENTAL STATUS CHANGES [None]
  - MUSCLE CONTRACTURE [None]
  - NAUSEA [None]
  - PALLOR [None]
  - SINUS ARRHYTHMIA [None]
  - SINUS TACHYCARDIA [None]
  - VOMITING [None]
